FAERS Safety Report 17645020 (Version 2)
Quarter: 2020Q2

REPORT INFORMATION
  Report Type: Spontaneous
  Country: DE (occurrence: DE)
  Receive Date: 20200408
  Receipt Date: 20200514
  Transmission Date: 20200713
  Serious: Yes (Death, Other)
  Sender: FDA-Public Use
  Company Number: DE-ELI_LILLY_AND_COMPANY-DE202004000850

PATIENT
  Sex: Female

DRUGS (2)
  1. VERZENIO [Suspect]
     Active Substance: ABEMACICLIB
     Indication: BREAST CANCER METASTATIC
     Dosage: 50 MG, BID
     Route: 065
  2. VERZENIO [Suspect]
     Active Substance: ABEMACICLIB
     Dosage: 100 MG, BID
     Route: 048
     Dates: end: 20191223

REACTIONS (6)
  - Necrosis [Unknown]
  - Malignant neoplasm progression [Unknown]
  - Hepatic failure [Fatal]
  - Hepatic cancer [Unknown]
  - Skin toxicity [Unknown]
  - Jaundice [Unknown]

NARRATIVE: CASE EVENT DATE: 20191210
